FAERS Safety Report 16872384 (Version 1)
Quarter: 2019Q4

REPORT INFORMATION
  Report Type: Spontaneous
  Country: DE (occurrence: DE)
  Receive Date: 20191001
  Receipt Date: 20191001
  Transmission Date: 20200122
  Serious: Yes (Congenital Anomaly)
  Sender: FDA-Public Use
  Company Number: DE-DRREDDYS-GER/GER/19/0114511

PATIENT
  Age: 1 Day
  Sex: Male
  Weight: 3.35 kg

DRUGS (2)
  1. FEMIBION [Concomitant]
     Indication: PRODUCT USED FOR UNKNOWN INDICATION
     Route: 064
  2. VENLAFAXINE [Suspect]
     Active Substance: VENLAFAXINE HYDROCHLORIDE
     Indication: PRODUCT USED FOR UNKNOWN INDICATION
     Dosage: 225 [MG/D ]/ PROBABLY ONGOING
     Route: 064
     Dates: start: 20180412, end: 20180620

REACTIONS (2)
  - Foetal exposure during pregnancy [Unknown]
  - Talipes [Unknown]

NARRATIVE: CASE EVENT DATE: 20190112
